FAERS Safety Report 6903557-1 (Version None)
Quarter: 2010Q3

REPORT INFORMATION
  Report Type: 
  Country: None (occurrence: None)
  Receive Date: 20100730
  Receipt Date: 20100722
  Transmission Date: 20110219
  Serious: Yes (Hospitalization)
  Sender: FDA-Public Use
  Company Number: ABCOB-10-0382

PATIENT
  Age: 66 Year
  Sex: Female
  Weight: 68 kg

DRUGS (16)
  1. ABRAXANE [Suspect]
     Indication: PANCREATIC CARCINOMA
     Dosage: (100 MG)
     Dates: start: 20100701, end: 20100708
  2. ERLOTINIB HYDROCHLORIDE [Suspect]
     Indication: PANCREATIC CARCINOMA
     Dosage: (100 MG), ORAL
     Route: 048
     Dates: start: 20100701
  3. GEMCITABINE [Suspect]
     Indication: PANCREATIC CARCINOMA
     Dosage: (1000 MG), INTRAVENOUS
     Route: 042
     Dates: start: 20100211
  4. METOPROLOL SUCCINATE [Concomitant]
  5. LOVASTATIN [Concomitant]
  6. DICLOFENAC SODIUM [Concomitant]
  7. IBUPROFEN [Concomitant]
  8. MIRALAX [Concomitant]
  9. AMLODIPINE [Concomitant]
  10. AMBIEN [Concomitant]
  11. OXYCODONE HCL [Concomitant]
  12. COMPAZINE (NAPROXEN SODIUM) [Concomitant]
  13. ONDANSETRON [Concomitant]
  14. ROBITUSSIN (GUAIFENESIN) [Concomitant]
  15. ATIVAN [Concomitant]
  16. METOCLOPRAMIDE [Concomitant]

REACTIONS (12)
  - ABDOMINAL PAIN [None]
  - ASTHENIA [None]
  - FEELING COLD [None]
  - MENINGIOMA [None]
  - NAUSEA [None]
  - NIGHT BLINDNESS [None]
  - NIGHT SWEATS [None]
  - PYREXIA [None]
  - TEMPORAL ARTERITIS [None]
  - TOXIC OPTIC NEUROPATHY [None]
  - VISION BLURRED [None]
  - VITAMIN A DEFICIENCY [None]
